FAERS Safety Report 6709111-9 (Version None)
Quarter: 2010Q2

REPORT INFORMATION
  Report Type: 
  Country: None (occurrence: None)
  Receive Date: 20100503
  Receipt Date: 20100503
  Transmission Date: 20101027
  Serious: Yes (Hospitalization)
  Sender: FDA-Public Use
  Company Number: None

PATIENT
  Age: 30 Year
  Sex: Male
  Weight: 96.7 kg

DRUGS (2)
  1. IMIPRAMINE [Suspect]
     Indication: POLLAKIURIA
     Dosage: 50 MG BID PO
     Route: 048
     Dates: start: 20091204, end: 20100208
  2. IMIPRAMINE [Suspect]
     Indication: SPONTANEOUS PENILE ERECTION
     Dosage: 50 MG BID PO
     Route: 048
     Dates: start: 20091204, end: 20100208

REACTIONS (3)
  - HOMICIDAL IDEATION [None]
  - IRRITABILITY [None]
  - SUICIDAL IDEATION [None]
